FAERS Safety Report 4380614-8 (Version None)
Quarter: 2004Q2

REPORT INFORMATION
  Report Type: 
  Country: None (occurrence: None)
  Receive Date: 20040618
  Receipt Date: 20040608
  Transmission Date: 20050107
  Serious: Yes (Other)
  Sender: FDA-Public Use
  Company Number: FR-GLAXOSMITHKLINE-B0335307A

PATIENT
  Age: 82 Year
  Sex: Female

DRUGS (4)
  1. ZANTAC [Suspect]
     Route: 048
     Dates: start: 20040501
  2. ANGIOTENSIN-CONVERTING ENZYME INHIBITOR (UNSPECIFIED) [Suspect]
     Route: 048
     Dates: start: 20040501
  3. CORDARONE [Suspect]
     Route: 048
     Dates: start: 20040501
  4. ANTICOAGULANTS (UNSPECIFIED) [Concomitant]
     Route: 048

REACTIONS (1)
  - NEUTROPENIA [None]
